FAERS Safety Report 8023368-6 (Version None)
Quarter: 2012Q1

REPORT INFORMATION
  Report Type: 
  Country: None (occurrence: None)
  Receive Date: 20120104
  Receipt Date: 20111222
  Transmission Date: 20120608
  Serious: Yes (Hospitalization)
  Sender: FDA-Public Use
  Company Number: FI-ELI_LILLY_AND_COMPANY-FI201111008249

PATIENT
  Sex: Male
  Weight: 110 kg

DRUGS (10)
  1. BYETTA [Suspect]
     Dosage: 10 UG, BID
     Route: 058
  2. CARDIOVASCULAR SYSTEM DRUGS [Concomitant]
  3. BYETTA [Suspect]
     Indication: TYPE 2 DIABETES MELLITUS
     Dosage: 5 UG, BID
     Route: 058
     Dates: start: 20110822, end: 20110920
  4. BYETTA [Suspect]
     Dosage: 10 UG, BID
     Route: 058
     Dates: start: 20110921
  5. BYETTA [Suspect]
     Dosage: 5 UG, BID
     Route: 058
  6. INSULIN [Concomitant]
     Dosage: UNK
     Dates: end: 20111001
  7. LEVEMIR [Concomitant]
     Dosage: 60 U, QD
  8. DIFORMIN [Concomitant]
     Dosage: UNK
     Dates: end: 20111001
  9. LEVEMIR [Concomitant]
     Dosage: 40 U, QD
  10. LEVEMIR [Concomitant]
     Dosage: 80 U, QD
     Dates: end: 20111001

REACTIONS (14)
  - BLOOD GLUCOSE FLUCTUATION [None]
  - COUGH [None]
  - DYSPEPSIA [None]
  - OROPHARYNGEAL PAIN [None]
  - INFECTION [None]
  - OROPHARYNGEAL SWELLING [None]
  - BOWEL MOVEMENT IRREGULARITY [None]
  - DRY MOUTH [None]
  - BLOOD GLUCOSE INCREASED [None]
  - TACHYARRHYTHMIA [None]
  - CARDIAC DISORDER [None]
  - CHOLECYSTITIS INFECTIVE [None]
  - WEIGHT DECREASED [None]
  - OFF LABEL USE [None]
